FAERS Safety Report 24080716 (Version 2)
Quarter: 2025Q1

REPORT INFORMATION
  Report Type: Spontaneous
  Country: JP (occurrence: JP)
  Receive Date: 20240711
  Receipt Date: 20250131
  Transmission Date: 20250409
  Serious: Yes (Hospitalization, Other)
  Sender: BAYER HEALTHCARE PHARMACEUTICALS INC.
  Company Number: JP-BAYER-2024A099322

PATIENT
  Age: 71 Year
  Sex: Male

DRUGS (3)
  1. NUBEQA [Suspect]
     Active Substance: DAROLUTAMIDE
     Indication: Prostate cancer metastatic
     Dates: start: 20240423
  2. DOCETAXEL [Suspect]
     Active Substance: DOCETAXEL
     Dates: start: 20240423, end: 20240625
  3. ZOLEDRONIC ACID [Concomitant]
     Active Substance: ZOLEDRONIC ACID
     Route: 041

REACTIONS (2)
  - Radiation pneumonitis [Recovered/Resolved]
  - Agranulocytosis [Recovered/Resolved]

NARRATIVE: CASE EVENT DATE: 20240523
